FAERS Safety Report 5257999-3 (Version None)
Quarter: 2007Q1

REPORT INFORMATION
  Report Type: 
  Country: None (occurrence: None)
  Receive Date: 20070307
  Receipt Date: 20061201
  Transmission Date: 20070707
  Serious: No
  Sender: FDA-Public Use
  Company Number: US-GLAXOSMITHKLINE-A0629936A

PATIENT
  Age: 60 Year
  Sex: Female

DRUGS (2)
  1. REQUIP [Suspect]
     Indication: RESTLESS LEGS SYNDROME
     Dosage: 1MG SEE DOSAGE TEXT
     Route: 048
     Dates: start: 20060901, end: 20061101
  2. NO CONCURRENT MEDICATION [Concomitant]

REACTIONS (1)
  - NIGHTMARE [None]
